FAERS Safety Report 6925796-6 (Version None)
Quarter: 2010Q3

REPORT INFORMATION
  Report Type: 
  Country: None (occurrence: None)
  Receive Date: 20100810
  Receipt Date: 20100730
  Transmission Date: 20110219
  Serious: Yes (Other)
  Sender: FDA-Public Use
  Company Number: DKLU1062300

PATIENT
  Age: 2 Year
  Sex: Female

DRUGS (7)
  1. ELSPAR [Suspect]
     Indication: ACUTE LYMPHOCYTIC LEUKAEMIA
     Dosage: INTRAVENOUS
     Route: 042
  2. PREDNISONE [Suspect]
     Indication: ACUTE LYMPHOCYTIC LEUKAEMIA
     Dosage: ORAL
     Route: 048
  3. DAUNORUBICIN HCL [Suspect]
     Indication: ACUTE LYMPHOCYTIC LEUKAEMIA
     Dosage: INTRAVENOUS
     Route: 042
  4. VINCRISTINE [Suspect]
     Indication: ACUTE LYMPHOCYTIC LEUKAEMIA
     Dosage: INTRAVENOUS BOLUS
     Route: 040
  5. CIPROXIN (CIPROFLOXACIN) [Concomitant]
  6. BACTRIM [Concomitant]
  7. ONDANSETRON [Concomitant]

REACTIONS (4)
  - BODY TEMPERATURE INCREASED [None]
  - HAEMOGLOBIN DECREASED [None]
  - NEUTROPHIL PERCENTAGE INCREASED [None]
  - PNEUMATOSIS INTESTINALIS [None]
